FAERS Safety Report 14964835 (Version 1)
Quarter: 2018Q2

REPORT INFORMATION
  Report Type: Spontaneous
  Country: DE (occurrence: DE)
  Receive Date: 20180601
  Receipt Date: 20180601
  Transmission Date: 20180711
  Serious: Yes (Other)
  Sender: FDA-Public Use
  Company Number: PHHY2018DE011673

PATIENT
  Age: 1 Day
  Sex: Male
  Weight: 2.5 kg

DRUGS (7)
  1. BISOPROLOL [Suspect]
     Active Substance: BISOPROLOL
     Indication: FOETAL EXPOSURE DURING PREGNANCY
     Dosage: MOTHER DOSE: INITIAL 5MG/D, DOSAGE REDUCTION FROM WEEK 13+3 TO 2.5MG/D ( 0. - 40.1. GESTATIONAL WEE)
     Route: 064
  2. MENOGON [Concomitant]
     Active Substance: MENOTROPINS
     Indication: FOETAL EXPOSURE DURING PREGNANCY
     Dosage: UNK (TRIMESTER: PRECONCEPTIONAL)
     Route: 064
  3. FAMENITA [Concomitant]
     Active Substance: PROGESTERONE
     Indication: FOETAL EXPOSURE DURING PREGNANCY
     Dosage: MOTHER DOSE: 200 [MG/D ] (2-10 GESTATIONAL WEEK)
     Route: 064
  4. FOLIO FORTE [Concomitant]
     Active Substance: FOLIC ACID\VITAMINS
     Indication: FOETAL EXPOSURE DURING PREGNANCY
     Dosage: UNK ( 0. - 40.1. GESTATIONAL WEEK)
     Route: 064
  5. HUMALOG [Concomitant]
     Active Substance: INSULIN LISPRO
     Indication: FOETAL EXPOSURE DURING PREGNANCY
     Dosage: UNK (14. - 16. GESTATIONAL WEEK )
     Route: 064
  6. METFORMIN [Concomitant]
     Active Substance: METFORMIN HYDROCHLORIDE
     Indication: FOETAL EXPOSURE DURING PREGNANCY
     Dosage: MOTHER DOSE: 1100 [MG/D ]/ 0-250-850 MG/D (0-12 GESTATIONAL WEEK)
     Route: 064
  7. METHYLDOPA. [Suspect]
     Active Substance: METHYLDOPA
     Indication: FOETAL EXPOSURE DURING PREGNANCY
     Dosage: MOTHER DOSE: 1000 [MG/D ]/ INITIAL 500MG/D, SLOW DOSAGE INCREASE TO 1000MG/D (0. - 40.1. GESTATIONA)
     Route: 064

REACTIONS (1)
  - Small for dates baby [Recovered/Resolved]

NARRATIVE: CASE EVENT DATE: 20171113
